FAERS Safety Report 7448431-X (Version None)
Quarter: 2011Q2

REPORT INFORMATION
  Report Type: 
  Country: None (occurrence: None)
  Receive Date: 20110429
  Receipt Date: 20110425
  Transmission Date: 20111010
  Serious: Yes (Death, Other)
  Sender: FDA-Public Use
  Company Number: US-ASTRAZENECA-2010SE07451

PATIENT
  Sex: Female

DRUGS (7)
  1. EFFEXOR XR [Concomitant]
     Dosage: LAST FILLED 14-FEB-2011
  2. SEROQUEL XR [Suspect]
     Indication: AGITATION
     Route: 048
     Dates: start: 20100922
  3. DICLOFENAC [Concomitant]
  4. WARFARIN SODIUM [Concomitant]
  5. POTASSIUM [Concomitant]
  6. ICAP [Concomitant]
     Dosage: 300-5-200-75 UNITS 1 DAILY
  7. AVAPRO [Concomitant]

REACTIONS (3)
  - CEREBROVASCULAR ACCIDENT [None]
  - OEDEMA PERIPHERAL [None]
  - THROMBOSIS [None]
